FAERS Safety Report 19725855 (Version 1)
Quarter: 2021Q3

REPORT INFORMATION
  Report Type: Spontaneous
  Country: US (occurrence: US)
  Receive Date: 20210819
  Receipt Date: 20210819
  Transmission Date: 20211014
  Serious: No
  Sender: FDA-Public Use
  Company Number: US-MANNKIND CORPORATION-2021MK000032

PATIENT
  Age: 55 Year
  Sex: Male
  Weight: 108.96 kg

DRUGS (9)
  1. AFREZZA [Suspect]
     Active Substance: INSULIN HUMAN
     Dates: start: 202011, end: 202101
  2. METFORMIN [Concomitant]
     Active Substance: METFORMIN HYDROCHLORIDE
     Indication: TYPE 2 DIABETES MELLITUS
     Route: 048
     Dates: end: 2020
  3. AFREZZA [Suspect]
     Active Substance: INSULIN HUMAN
     Dosage: 20?24 UNITS
     Dates: start: 202101
  4. SOLIQUA 100/33 [Concomitant]
     Active Substance: INSULIN GLARGINE\LIXISENATIDE
     Indication: TYPE 2 DIABETES MELLITUS
     Dosage: 10?20 UNITS
  5. GLUCOSE [Concomitant]
     Active Substance: DEXTROSE
     Indication: TYPE 2 DIABETES MELLITUS
     Route: 048
     Dates: start: 2020
  6. AFREZZA [Suspect]
     Active Substance: INSULIN HUMAN
     Indication: TYPE 2 DIABETES MELLITUS
     Dosage: 20?24 UNITS
     Dates: start: 202101
  7. AFREZZA [Suspect]
     Active Substance: INSULIN HUMAN
  8. AFREZZA [Suspect]
     Active Substance: INSULIN HUMAN
     Dates: start: 202011, end: 202101
  9. AFREZZA [Suspect]
     Active Substance: INSULIN HUMAN
     Dosage: 20 OR 24 UNITS
     Dates: start: 2019, end: 202011

REACTIONS (7)
  - Dyspnoea [Recovered/Resolved]
  - Blood glucose increased [Unknown]
  - Blood glucose decreased [Unknown]
  - Dizziness [Unknown]
  - Nausea [Unknown]
  - Photopsia [Unknown]
  - Blood glucose fluctuation [Unknown]

NARRATIVE: CASE EVENT DATE: 2019
